FAERS Safety Report 5025862-9 (Version None)
Quarter: 2006Q2

REPORT INFORMATION
  Report Type: 
  Country: None (occurrence: None)
  Receive Date: 20060608
  Receipt Date: 19980720
  Transmission Date: 20061013
  Serious: Yes (Hospitalization)
  Sender: FDA-Public Use
  Company Number: 97-10-0236

PATIENT
  Sex: Male

DRUGS (14)
  1. ETHYOL [Suspect]
     Indication: ADVERSE DRUG REACTION
     Dosage: INTRAVENOUS
     Route: 042
     Dates: start: 19971006, end: 19971006
  2. CARBOPLATIN [Concomitant]
  3. MORPHINE SULFATE [Concomitant]
  4. PERIACTIN [Concomitant]
  5. MS CONTIN [Concomitant]
  6. MEGACE [Concomitant]
  7. COMPAZINE [Concomitant]
  8. COLACE [Concomitant]
  9. LACTULOSE [Concomitant]
  10. ZYLOPRIM [Concomitant]
  11. IBUPROFEN [Concomitant]
  12. FAMOTIDINE [Concomitant]
  13. DYAZIDE [Concomitant]
  14. TAXOL [Concomitant]

REACTIONS (9)
  - CONFUSIONAL STATE [None]
  - HAEMATOCRIT DECREASED [None]
  - HAEMOGLOBIN DECREASED [None]
  - HYPOTENSION [None]
  - HYPOVENTILATION [None]
  - PALLOR [None]
  - RED BLOOD CELL COUNT DECREASED [None]
  - SOMNOLENCE [None]
  - WHITE BLOOD CELL COUNT INCREASED [None]
